FAERS Safety Report 8802791 (Version 1)
Quarter: 2012Q4

REPORT INFORMATION
  Report Type: 
  Country: US (occurrence: US)
  Receive Date: 20120921
  Receipt Date: 20120921
  Transmission Date: 20130627
  Serious: No
  Sender: FDA-Public Use
  Company Number: US-ASTRAZENECA-2012SE71001

PATIENT
  Age: 2 Year
  Sex: Female
  Weight: 10.4 kg

DRUGS (3)
  1. NEXIUM [Suspect]
     Indication: EOSINOPHILIC OESOPHAGITIS
     Route: 048
  2. NEXIUM [Suspect]
     Indication: EOSINOPHILIC OESOPHAGITIS
     Route: 048
  3. PRILOSEC [Suspect]
     Indication: EOSINOPHILIC OESOPHAGITIS
     Route: 048

REACTIONS (3)
  - Feeling abnormal [Unknown]
  - Off label use [Unknown]
  - Off label use [Unknown]
